FAERS Safety Report 9007869 (Version 2)
Quarter: 2013Q1

REPORT INFORMATION
  Report Type: Spontaneous
  Country: GB (occurrence: GB)
  Receive Date: 20130111
  Receipt Date: 20130123
  Transmission Date: 20140127
  Serious: Yes (Other)
  Sender: FDA-Public Use
  Company Number: GB-ACCORD-015885

PATIENT
  Age: 70 Year
  Sex: Female

DRUGS (1)
  1. SIMVASTATIN [Suspect]
     Indication: BLOOD CHOLESTEROL INCREASED
     Route: 048
     Dates: start: 200901, end: 201212

REACTIONS (22)
  - Depression [Unknown]
  - Memory impairment [Unknown]
  - Flatulence [Unknown]
  - Constipation [Unknown]
  - Dizziness [Unknown]
  - Cough [Unknown]
  - Aphonia [Unknown]
  - Hyperhidrosis [Unknown]
  - Myalgia [Unknown]
  - Tenderness [Unknown]
  - Asthenia [Unknown]
  - Pharyngeal oedema [Unknown]
  - Muscular weakness [Unknown]
  - Pruritus [Unknown]
  - Rash [Unknown]
  - Malaise [Unknown]
  - Chest pain [Unknown]
  - Asthma [Unknown]
  - Infection [Unknown]
  - Cholelithiasis [Unknown]
  - Contusion [Unknown]
  - Stress [Unknown]
